FAERS Safety Report 6160548-9 (Version None)
Quarter: 2009Q2

REPORT INFORMATION
  Report Type: 
  Country: None (occurrence: None)
  Receive Date: 20090420
  Receipt Date: 20090408
  Transmission Date: 20091009
  Serious: Yes (Other)
  Sender: FDA-Public Use
  Company Number: US-PFIZER INC-2006052018

PATIENT
  Sex: Female
  Weight: 67 kg

DRUGS (10)
  1. MEDROXYPROGESTERONE ACETATE AND MEDROXYPROGESTERONE [Suspect]
     Indication: HORMONE REPLACEMENT THERAPY
     Dosage: 2.5 MG, UNK
     Route: 048
     Dates: start: 19880101, end: 19990201
  2. MEDROXYPROGESTERONE AND MEDROXYPROGESTERONE ACETATE [Suspect]
     Indication: MENOPAUSE
  3. MEDROXYPROGESTERONE ACETATE [Suspect]
     Indication: HORMONE REPLACEMENT THERAPY
     Dosage: 2.5 MG, UNK
     Dates: start: 19880101, end: 19990201
  4. MEDROXYPROGESTERONE ACETATE [Suspect]
     Indication: MENOPAUSE
  5. CYCRIN [Suspect]
     Indication: HORMONE REPLACEMENT THERAPY
     Dosage: 2.5 MG, UNK
     Dates: start: 19970915, end: 19981130
  6. CYCRIN [Suspect]
     Indication: MENOPAUSE
  7. PREMARIN [Suspect]
     Indication: HORMONE REPLACEMENT THERAPY
     Dosage: .625 MG, UNK
     Dates: start: 19880101, end: 19990201
  8. PREMARIN [Suspect]
     Indication: MENOPAUSE
  9. ZOLOFT [Concomitant]
     Indication: DEPRESSION
     Dosage: UNK
     Dates: start: 19990101, end: 19991201
  10. SYNTHROID [Concomitant]
     Indication: THYROID DISORDER
     Dosage: UNK
     Dates: start: 19730101

REACTIONS (5)
  - ANXIETY [None]
  - BREAST CANCER [None]
  - BREAST CANCER FEMALE [None]
  - DEPRESSION [None]
  - OESTROGEN RECEPTOR ASSAY POSITIVE [None]
